FAERS Safety Report 8306037-4 (Version None)
Quarter: 2012Q2

REPORT INFORMATION
  Report Type: 
  Country: None (occurrence: None)
  Receive Date: 20120423
  Receipt Date: 20120413
  Transmission Date: 20120825
  Serious: Yes (Other)
  Sender: FDA-Public Use
  Company Number: CHPA2012US006600

PATIENT
  Age: 87 Year
  Sex: Female

DRUGS (3)
  1. VOLTAREN [Suspect]
     Indication: PAIN
     Dosage: UNK, 2-3 TIMES A DAY
     Route: 061
     Dates: start: 20100101
  2. ANALGESICS, EXTERNAL [Concomitant]
     Indication: NERVE DEGENERATION
  3. DRUG THERAPY NOS [Concomitant]
     Indication: NERVE DEGENERATION
     Route: 008

REACTIONS (3)
  - DRUG DEPENDENCE [None]
  - OFF LABEL USE [None]
  - DRUG ADMINISTERED AT INAPPROPRIATE SITE [None]
